FAERS Safety Report 7276280-4 (Version None)
Quarter: 2011Q1

REPORT INFORMATION
  Report Type: 
  Country: None (occurrence: None)
  Receive Date: 20110204
  Receipt Date: 20110128
  Transmission Date: 20110831
  Serious: Yes (Other)
  Sender: FDA-Public Use
  Company Number: IE-MEDIMMUNE-MEDI-0012400

PATIENT
  Sex: Male

DRUGS (2)
  1. SYNAGIS [Suspect]
     Indication: HEART DISEASE CONGENITAL
     Route: 030
     Dates: start: 20101013, end: 20101013
  2. ACETYLSALICYLIC ACID [Concomitant]

REACTIONS (2)
  - RESPIRATORY RATE INCREASED [None]
  - RESPIRATORY TRACT CONGESTION [None]
